FAERS Safety Report 6244149-X (Version None)
Quarter: 2009Q2

REPORT INFORMATION
  Report Type: 
  Country: None (occurrence: None)
  Receive Date: 20090623
  Receipt Date: 20090623
  Transmission Date: 20091009
  Serious: No
  Sender: FDA-Public Use
  Company Number: None

PATIENT
  Age: 62 Year
  Sex: Male
  Weight: 101.2 kg

DRUGS (1)
  1. VANCOMYCIN [Suspect]
     Indication: SURGERY
     Dosage: 1800 MG EVERY DAY IV
     Route: 042
     Dates: start: 20090514, end: 20090523

REACTIONS (6)
  - DYSPHAGIA [None]
  - INFUSION RELATED REACTION [None]
  - LOCAL SWELLING [None]
  - PHARYNGEAL OEDEMA [None]
  - SWELLING FACE [None]
  - THROAT TIGHTNESS [None]
